FAERS Safety Report 5152881-4 (Version None)
Quarter: 2006Q4

REPORT INFORMATION
  Report Type: 
  Country: None (occurrence: None)
  Receive Date: 20061113
  Receipt Date: 20061113
  Transmission Date: 20070319
  Serious: No
  Sender: FDA-Public Use
  Company Number: None

PATIENT
  Age: 49 Year
  Sex: Female
  Weight: 85.7298 kg

DRUGS (1)
  1. CLINDAMYCIN [Suspect]
     Indication: ORAL INFECTION
     Dosage: 2 FIRST DAY EVERY 6 HOURS

REACTIONS (1)
  - DEPRESSION [None]
